FAERS Safety Report 23330310 (Version 1)
Quarter: 2023Q4

REPORT INFORMATION
  Report Type: Spontaneous
  Country: US (occurrence: US)
  Receive Date: 20231222
  Receipt Date: 20231222
  Transmission Date: 20240110
  Serious: No
  Sender: FDA-Public Use
  Company Number: US-SA-SAC20231215000210

PATIENT
  Age: 73 Year
  Sex: Female
  Weight: 82.1 kg

DRUGS (1)
  1. DUPIXENT [Suspect]
     Active Substance: DUPILUMAB
     Dosage: 300 MG, QOW
     Route: 058
     Dates: start: 202006

REACTIONS (7)
  - Nasal congestion [Unknown]
  - Ear pain [Unknown]
  - Chest discomfort [Unknown]
  - Chest pain [Unknown]
  - Nasopharyngitis [Unknown]
  - Pruritus [Unknown]
  - Oropharyngeal pain [Unknown]

NARRATIVE: CASE EVENT DATE: 20230101
